FAERS Safety Report 5711994-6 (Version None)
Quarter: 2008Q2

REPORT INFORMATION
  Report Type: 
  Country: None (occurrence: None)
  Receive Date: 20080422
  Receipt Date: 20080410
  Transmission Date: 20081010
  Serious: Yes (Hospitalization)
  Sender: FDA-Public Use
  Company Number: MY-RANBAXY-2008R3-14465

PATIENT

DRUGS (12)
  1. CEFADROXIL [Suspect]
     Indication: PHARYNGITIS
     Dosage: 125 MG/5ML, UNK
     Dates: start: 20080313, end: 20080322
  2. CEFADROXIL [Suspect]
     Indication: PYREXIA
  3. CEFADROXIL [Suspect]
     Indication: STOMACH DISCOMFORT
  4. PARACETAMOL [Concomitant]
     Indication: PHARYNGITIS
     Dosage: UNK
     Dates: start: 20080313, end: 20080322
  5. PARACETAMOL [Concomitant]
     Indication: PYREXIA
  6. PARACETAMOL [Concomitant]
     Indication: STOMACH DISCOMFORT
  7. DEXCOPHEN SYRUP [Concomitant]
     Indication: PHARYNGITIS
     Dosage: UNK
     Dates: start: 20080313, end: 20080322
  8. DEXCOPHEN SYRUP [Concomitant]
     Indication: PYREXIA
  9. DEXCOPHEN SYRUP [Concomitant]
     Indication: STOMACH DISCOMFORT
  10. HYCOLIC SYRUP [Concomitant]
     Indication: PHARYNGITIS
     Dosage: UNK
     Dates: start: 20080313, end: 20080322
  11. HYCOLIC SYRUP [Concomitant]
     Indication: PYREXIA
  12. HYCOLIC SYRUP [Concomitant]
     Indication: STOMACH DISCOMFORT

REACTIONS (4)
  - ABASIA [None]
  - HENOCH-SCHONLEIN PURPURA [None]
  - PYREXIA [None]
  - RASH [None]
